FAERS Safety Report 5053377-0 (Version None)
Quarter: 2006Q3

REPORT INFORMATION
  Report Type: 
  Country: None (occurrence: None)
  Receive Date: 20060712
  Receipt Date: 20060621
  Transmission Date: 20061208
  Serious: Yes (Hospitalization)
  Sender: FDA-Public Use
  Company Number: FR200606005345

PATIENT
  Age: 69 Year
  Sex: Female

DRUGS (15)
  1. FORTEO [Suspect]
     Indication: OSTEOPOROSIS
     Dosage: 20 UG, DAILY (1/D), SUBCUTANEOUS
     Route: 058
     Dates: start: 20050923
  2. FORTEO [Concomitant]
  3. METHOTREXATE [Concomitant]
  4. CALCIDOSE (CALCIUM CARBONATE) [Concomitant]
  5. POTASSIUM CHLORIDE [Concomitant]
  6. LEXOMIL (BROMAZEPAM) [Concomitant]
  7. ZOLOFT [Concomitant]
  8. MOTILIUM [Concomitant]
  9. MUCOMYST [Concomitant]
  10. SYMBICORT (BUDESONIDE, FORMOTEROL FUMARATE) [Concomitant]
  11. DURAGESIC-100 [Concomitant]
  12. PRAXILENE (NAFTIDROFURYL OXALATE) [Concomitant]
  13. SPECIAFOLDINE (FOLIC ACID) [Concomitant]
  14. TANGANIL (ETHANOLAMINE ACETYLLEUCINATE) [Concomitant]
  15. PLAVIX [Concomitant]

REACTIONS (7)
  - BLINDNESS UNILATERAL [None]
  - COAGULOPATHY [None]
  - ERYTHEMA [None]
  - EYE DISORDER [None]
  - HAEMOPTYSIS [None]
  - HEADACHE [None]
  - THROMBOSIS [None]
